FAERS Safety Report 13800814 (Version 1)
Quarter: 2017Q3

REPORT INFORMATION
  Report Type: Spontaneous
  Country: US (occurrence: US)
  Receive Date: 20170727
  Receipt Date: 20170727
  Transmission Date: 20171127
  Serious: Yes (Other)
  Sender: FDA-Public Use
  Company Number: US-PFIZER INC-2017319375

PATIENT
  Age: 63 Year
  Sex: Male
  Weight: 95 kg

DRUGS (1)
  1. TIKOSYN [Suspect]
     Active Substance: DOFETILIDE
     Indication: ATRIAL FIBRILLATION
     Dosage: 500 UG, 2X/DAY
     Route: 048

REACTIONS (7)
  - Localised infection [Unknown]
  - Peripheral ischaemia [Unknown]
  - Fall [Unknown]
  - Nail injury [Unknown]
  - Impaired healing [Unknown]
  - Gangrene [Unknown]
  - Renal impairment [Unknown]
